FAERS Safety Report 25829859 (Version 1)
Quarter: 2025Q3

REPORT INFORMATION
  Report Type: Spontaneous
  Country: CA (occurrence: CA)
  Receive Date: 20250922
  Receipt Date: 20250922
  Transmission Date: 20251021
  Serious: Yes (Other)
  Sender: AUROBINDO
  Company Number: CA-AUROBINDO-AUR-APL-2025-047692

PATIENT
  Age: 70 Year
  Sex: Female

DRUGS (2)
  1. MEROPENEM [Suspect]
     Active Substance: MEROPENEM
     Indication: Product used for unknown indication
     Route: 042
  2. CEFTRIAXONE [Suspect]
     Active Substance: CEFTRIAXONE
     Indication: Product used for unknown indication
     Route: 030

REACTIONS (4)
  - Cognitive disorder [Recovering/Resolving]
  - Generalised tonic-clonic seizure [Recovering/Resolving]
  - Meningitis bacterial [Recovering/Resolving]
  - Drug ineffective [Recovering/Resolving]
